FAERS Safety Report 8380826-2 (Version None)
Quarter: 2012Q2

REPORT INFORMATION
  Report Type: 
  Country: None (occurrence: None)
  Receive Date: 20120523
  Receipt Date: 20120515
  Transmission Date: 20120825
  Serious: Yes (Hospitalization)
  Sender: FDA-Public Use
  Company Number: JP-VERTEX PHARMACEUTICALS INC.-AE-2012-004623

PATIENT
  Age: 55 Year
  Sex: Female

DRUGS (11)
  1. REBETOL [Concomitant]
     Route: 048
     Dates: start: 20120410
  2. TELAVIC (TELAPREVIR) [Suspect]
     Indication: HEPATITIS C
     Route: 048
     Dates: start: 20120207, end: 20120320
  3. PEG-INTRON [Concomitant]
     Route: 058
     Dates: start: 20120329
  4. PEG-INTRON [Concomitant]
     Route: 058
     Dates: start: 20120403
  5. PEG-INTRON [Concomitant]
     Indication: HEPATITIS C
     Route: 058
     Dates: start: 20120207, end: 20120313
  6. RABEPRAZOLE SODIUM [Concomitant]
     Route: 048
     Dates: start: 20120207
  7. REBETOL [Concomitant]
     Indication: HEPATITIS C
     Route: 048
     Dates: start: 20120207, end: 20120305
  8. REBETOL [Concomitant]
     Route: 048
     Dates: start: 20120306, end: 20120320
  9. TELAVIC (TELAPREVIR) [Suspect]
     Route: 048
     Dates: start: 20120403, end: 20120423
  10. TELAVIC (TELAPREVIR) [Suspect]
     Route: 048
     Dates: start: 20120424, end: 20120430
  11. CANDESARTAN CILEXETIL [Concomitant]
     Route: 048

REACTIONS (1)
  - PYELONEPHRITIS [None]
